FAERS Safety Report 8327416-5 (Version None)
Quarter: 2012Q2

REPORT INFORMATION
  Report Type: 
  Country: None (occurrence: None)
  Receive Date: 20120502
  Receipt Date: 20120427
  Transmission Date: 20120825
  Serious: Yes (Hospitalization)
  Sender: FDA-Public Use
  Company Number: US-ELI_LILLY_AND_COMPANY-US201204010013

PATIENT
  Sex: Female

DRUGS (4)
  1. HUMALOG [Suspect]
     Indication: DIABETES MELLITUS
     Dosage: UNK UNK, PRN
  2. PLAVIX [Concomitant]
     Dosage: UNK
  3. METFORMIN HCL [Concomitant]
     Dosage: UNK
  4. GLIPIZIDE [Concomitant]
     Dosage: UNK

REACTIONS (9)
  - BLOOD GLUCOSE INCREASED [None]
  - ARTERIAL DISORDER [None]
  - BACK PAIN [None]
  - CORONARY ARTERY OCCLUSION [None]
  - ALOPECIA [None]
  - NAUSEA [None]
  - EXPIRED DRUG ADMINISTERED [None]
  - HYPERHIDROSIS [None]
  - AUTOIMMUNE DISORDER [None]
